FAERS Safety Report 8268026-8 (Version None)
Quarter: 2012Q2

REPORT INFORMATION
  Report Type: 
  Country: None (occurrence: None)
  Receive Date: 20120409
  Receipt Date: 20120326
  Transmission Date: 20120825
  Serious: Yes (Death)
  Sender: FDA-Public Use
  Company Number: JP-ASTRAZENECA-2012SE22577

PATIENT
  Age: 79 Year
  Sex: Male

DRUGS (1)
  1. XYLOCAINE [Suspect]
     Route: 065

REACTIONS (2)
  - ANAPHYLACTOID SHOCK [None]
  - PULMONARY ALVEOLAR HAEMORRHAGE [None]
